FAERS Safety Report 5307070-7 (Version None)
Quarter: 2007Q2

REPORT INFORMATION
  Report Type: 
  Country: None (occurrence: None)
  Receive Date: 20070425
  Receipt Date: 20070413
  Transmission Date: 20071010
  Serious: Yes (Other)
  Sender: FDA-Public Use
  Company Number: PHFR2007GB01341

PATIENT
  Age: 72 Year
  Sex: Male

DRUGS (1)
  1. TERBINAFINE HCL [Suspect]
     Indication: FUNGAL INFECTION
     Dosage: 250 MG, QD
     Route: 048

REACTIONS (2)
  - DYSPNOEA [None]
  - PARAESTHESIA [None]
